FAERS Safety Report 20735303 (Version 1)
Quarter: 2022Q2

REPORT INFORMATION
  Report Type: Spontaneous
  Country: RU (occurrence: None)
  Receive Date: 20220421
  Receipt Date: 20220421
  Transmission Date: 20220720
  Serious: Yes (Other)
  Sender: FDA-Public Use
  Company Number: 2022A154055

PATIENT
  Age: 60 Year
  Sex: Female
  Weight: 106 kg

DRUGS (4)
  1. IMFINZI [Suspect]
     Active Substance: DURVALUMAB
     Indication: Non-small cell lung cancer
     Route: 042
  2. IMFINZI [Suspect]
     Active Substance: DURVALUMAB
     Indication: Non-small cell lung cancer
     Route: 042
  3. IMFINZI [Suspect]
     Active Substance: DURVALUMAB
     Indication: Non-small cell lung cancer
     Route: 042
  4. IMFINZI [Suspect]
     Active Substance: DURVALUMAB
     Indication: Non-small cell lung cancer
     Dosage: THE FOURTH INJECTION WAS MADE AFTER PROGRESSION, BECAUSE THE MEDICATION HAD ALREADY BEEN PURCHASED
     Route: 042

REACTIONS (2)
  - Malignant neoplasm progression [Unknown]
  - Off label use [Unknown]
